FAERS Safety Report 6221132-1 (Version None)
Quarter: 2009Q2

REPORT INFORMATION
  Report Type: 
  Country: None (occurrence: None)
  Receive Date: 20090608
  Receipt Date: 20090602
  Transmission Date: 20091009
  Serious: Yes (Hospitalization)
  Sender: FDA-Public Use
  Company Number: 2009AL003646

PATIENT
  Age: 109 Year
  Sex: Female

DRUGS (1)
  1. CARBAMAZEPINE [Suspect]
     Indication: TRIGEMINAL NEURALGIA
     Dosage: 400 MG QD UNK

REACTIONS (15)
  - ANOREXIA [None]
  - ATAXIA [None]
  - BEDRIDDEN [None]
  - BRADYCARDIA [None]
  - CONDITION AGGRAVATED [None]
  - DELIRIUM [None]
  - DEPRESSED MOOD [None]
  - DRUG EFFECT DECREASED [None]
  - DRUG INEFFECTIVE [None]
  - DYSPHORIA [None]
  - FALL [None]
  - FATIGUE [None]
  - HYPONATRAEMIA [None]
  - TRIGEMINAL NEURALGIA [None]
  - WEIGHT DECREASED [None]
